FAERS Safety Report 4676472-4 (Version None)
Quarter: 2005Q2

REPORT INFORMATION
  Report Type: 
  Country: None (occurrence: None)
  Receive Date: 20050525
  Receipt Date: 20050512
  Transmission Date: 20051028
  Serious: Yes (Other)
  Sender: FDA-Public Use
  Company Number: 2005074861

PATIENT

DRUGS (1)
  1. GABAPENTIN [Suspect]
     Indication: NEUROPATHIC PAIN
     Dosage: 3600 MG (900 MG, 4 IN 1 D), UNKNOWN

REACTIONS (1)
  - VENTRICULAR TACHYCARDIA [None]
